FAERS Safety Report 15590190 (Version 1)
Quarter: 2018Q4

REPORT INFORMATION
  Report Type: Spontaneous
  Country: US (occurrence: US)
  Receive Date: 20181106
  Receipt Date: 20181106
  Transmission Date: 20190205
  Serious: Yes (Hospitalization, Other)
  Sender: FDA-Public Use
  Company Number: US-GLAXOSMITHKLINE-US2018GSK201419

PATIENT
  Sex: Female
  Weight: 82 kg

DRUGS (2)
  1. PANTOPRAZOLE [Suspect]
     Active Substance: PANTOPRAZOLE
     Indication: DYSPEPSIA
     Dosage: 20 MG, QD
     Route: 065
  2. PREVACID [Suspect]
     Active Substance: LANSOPRAZOLE
     Indication: DYSPEPSIA
     Dosage: 20 MG, QD
     Route: 065

REACTIONS (11)
  - Acute kidney injury [Unknown]
  - Azotaemia [Unknown]
  - Renal failure [Unknown]
  - Kidney infection [Unknown]
  - Nephrogenic anaemia [Unknown]
  - Oliguria [Unknown]
  - Pyelonephritis [Unknown]
  - Chronic kidney disease [Unknown]
  - Glomerulonephritis [Unknown]
  - Dialysis [Unknown]
  - Renal tubular necrosis [Unknown]
